FAERS Safety Report 4332282-9 (Version None)
Quarter: 2004Q1

REPORT INFORMATION
  Report Type: 
  Country: None (occurrence: None)
  Receive Date: 20040331
  Receipt Date: 20040315
  Transmission Date: 20041129
  Serious: Yes (Hospitalization)
  Sender: FDA-Public Use
  Company Number: GBT040301253

PATIENT
  Age: 57 Year
  Sex: Female
  Weight: 104 kg

DRUGS (10)
  1. GEMCITABINE HYDROCHLORIDE-IV (GEMCITABINE) [Suspect]
     Indication: BREAST CANCER
     Dosage: 2750 MG OTHER
  2. PACLITAXEL [Suspect]
     Indication: BREAST CANCER
     Dosage: 385 MG OTHER
  3. EPIRUBICIN [Suspect]
     Indication: BREAST CANCER
     Dosage: 205 MG OTHER
     Dates: end: 20031211
  4. CYCLOPHOSPHAMIDE [Suspect]
     Indication: BREAST CANCER
     Dosage: 1368 MG OTHER
     Dates: end: 20031211
  5. ENALAPRIL MALEATE [Concomitant]
  6. BENDROFLUAZIDE [Concomitant]
  7. PAROXETINE HCL [Concomitant]
  8. AMITRIPTYLINE HCL [Concomitant]
  9. CO-CODAMOL [Concomitant]
  10. WARFARIN SODIUM [Concomitant]

REACTIONS (4)
  - BURNING SENSATION [None]
  - CHILLS [None]
  - DEHYDRATION [None]
  - PYREXIA [None]
